FAERS Safety Report 5179679-5 (Version None)
Quarter: 2006Q4

REPORT INFORMATION
  Report Type: 
  Country: None (occurrence: None)
  Receive Date: 20061212
  Receipt Date: 20061127
  Transmission Date: 20070319
  Serious: Yes (Hospitalization)
  Sender: FDA-Public Use
  Company Number: 229933

PATIENT
  Age: 50 Year
  Sex: Male

DRUGS (3)
  1. AVASTIN [Suspect]
     Indication: NON-SMALL CELL LUNG CANCER
     Dosage: 1755 MG, 3/WEEK, INTRAVENOUS
     Route: 042
     Dates: start: 20060814
  2. ERLOTINIB (ERLOTINIB) TABLET, 150MG [Suspect]
     Indication: NON-SMALL CELL LUNG CANCER
     Dosage: 150 MG,QD, ORAL
     Route: 048
     Dates: start: 20060814
  3. AUGMENTIN '250' [Suspect]

REACTIONS (2)
  - HAEMOPTYSIS [None]
  - HYDROPNEUMOTHORAX [None]
